FAERS Safety Report 8067670-0 (Version None)
Quarter: 2012Q1

REPORT INFORMATION
  Report Type: 
  Country: None (occurrence: None)
  Receive Date: 20120124
  Receipt Date: 20120119
  Transmission Date: 20120608
  Serious: Yes (Death)
  Sender: FDA-Public Use
  Company Number: GB-ELI_LILLY_AND_COMPANY-GB201109006639

PATIENT
  Sex: Male
  Weight: 99 kg

DRUGS (3)
  1. BYETTA [Suspect]
     Indication: DIABETES MELLITUS
     Dosage: 5 UG, BID
     Route: 058
     Dates: start: 20110111
  2. METFORMIN HCL [Concomitant]
  3. BYETTA [Suspect]
     Dosage: 10 UG, BID

REACTIONS (9)
  - HYPOPITUITARISM [None]
  - BLOOD CHOLESTEROL ABNORMAL [None]
  - MENTAL IMPAIRMENT [None]
  - MUSCULOSKELETAL STIFFNESS [None]
  - WEIGHT DECREASED [None]
  - BLOOD GLUCOSE ABNORMAL [None]
  - LUNG NEOPLASM MALIGNANT [None]
  - VOMITING [None]
  - BLOOD PRESSURE ABNORMAL [None]
